FAERS Safety Report 6210703-4 (Version None)
Quarter: 2009Q2

REPORT INFORMATION
  Report Type: 
  Country: None (occurrence: None)
  Receive Date: 20090528
  Receipt Date: 20090528
  Transmission Date: 20091009
  Serious: Yes (Other)
  Sender: FDA-Public Use
  Company Number: None

PATIENT
  Age: 44 Year
  Sex: Female
  Weight: 78.0187 kg

DRUGS (2)
  1. PRAVASTATIN [Suspect]
     Indication: BLOOD CHOLESTEROL INCREASED
     Dosage: 40MG NITES PO
     Route: 048
  2. PROVOCHOLINE [Suspect]
     Indication: BLOOD CHOLESTEROL INCREASED

REACTIONS (7)
  - ARTHRITIS [None]
  - ARTHROPATHY [None]
  - LIBIDO DECREASED [None]
  - MUSCLE ATROPHY [None]
  - MUSCULOSKELETAL STIFFNESS [None]
  - MYALGIA [None]
  - NO THERAPEUTIC RESPONSE [None]
